FAERS Safety Report 6818879-2 (Version None)
Quarter: 2010Q3

REPORT INFORMATION
  Report Type: 
  Country: None (occurrence: None)
  Receive Date: 20100707
  Receipt Date: 20100702
  Transmission Date: 20110219
  Serious: Yes (Hospitalization)
  Sender: FDA-Public Use
  Company Number: CA-SP-2010-02737

PATIENT
  Age: 73 Year
  Sex: Male

DRUGS (1)
  1. BCG  THERAPEUTICS [Suspect]
     Indication: BLADDER CANCER
     Dosage: NOT REPORTED
     Route: 043

REACTIONS (17)
  - ABDOMINAL MASS [None]
  - ABDOMINAL PAIN [None]
  - AORTIC ANEURYSM [None]
  - ASTHENIA [None]
  - BACK PAIN [None]
  - BOVINE TUBERCULOSIS [None]
  - DECREASED APPETITE [None]
  - DEEP VEIN THROMBOSIS [None]
  - FATIGUE [None]
  - FEMORAL ARTERY ANEURYSM [None]
  - MALAISE [None]
  - POLYMYALGIA RHEUMATICA [None]
  - PYREXIA [None]
  - RED BLOOD CELL SEDIMENTATION RATE INCREASED [None]
  - SEPSIS [None]
  - VASCULAR GRAFT COMPLICATION [None]
  - VASCULAR PSEUDOANEURYSM [None]
